FAERS Safety Report 7406664-2 (Version None)
Quarter: 2011Q2

REPORT INFORMATION
  Report Type: 
  Country: None (occurrence: None)
  Receive Date: 20110411
  Receipt Date: 20110401
  Transmission Date: 20111010
  Serious: Yes (Hospitalization, Other)
  Sender: FDA-Public Use
  Company Number: US-ASTRAZENECA-2011SE18787

PATIENT
  Age: 57 Year
  Sex: Female
  Weight: 73.5 kg

DRUGS (16)
  1. K-TAB [Concomitant]
     Route: 065
  2. MONTELUKAST SODIUM [Concomitant]
     Route: 065
  3. PULMICORT FLEXHALER [Suspect]
     Dosage: 180 MCG 2 PUFFS BID
     Route: 055
  4. ZOVIRAX [Concomitant]
  5. FLUCONAZOLE [Concomitant]
     Route: 065
  6. SENOKOT [Concomitant]
  7. CITALOPRAM HYDROBROMIDE [Concomitant]
     Route: 065
  8. GABAPENTIN [Concomitant]
     Route: 065
  9. OLANZAPINE [Concomitant]
     Route: 065
  10. OXYCODONE HCL [Concomitant]
     Dosage: 5 MG 1-3 Q6H PRN
  11. DOCUSATE SODIUM [Concomitant]
     Route: 065
  12. CLOBETASOL PROPIONATE [Concomitant]
     Dosage: 0.05 PERCENT SOLUTION 1 APP TWICE DAILY PRN
     Route: 065
  13. OMEPRAZOLE [Suspect]
     Route: 048
  14. PROVENTIL-HFA [Concomitant]
     Dosage: 108 MCG 2 PUFFS QID
  15. OXYCONTIN [Concomitant]
     Route: 065
  16. PREDNISONE [Concomitant]
     Route: 065

REACTIONS (11)
  - DISABILITY [None]
  - WEIGHT INCREASED [None]
  - SKIN DISORDER [None]
  - ROSACEA [None]
  - CARPAL TUNNEL SYNDROME [None]
  - COLON ADENOMA [None]
  - HYPERLIPIDAEMIA [None]
  - MULTIPLE ALLERGIES [None]
  - MULTIPLE MYELOMA [None]
  - ASTHMA [None]
  - GRAFT VERSUS HOST DISEASE [None]
